FAERS Safety Report 24418692 (Version 1)
Quarter: 2024Q4

REPORT INFORMATION
  Report Type: Spontaneous
  Country: GB (occurrence: GB)
  Receive Date: 20241009
  Receipt Date: 20241009
  Transmission Date: 20250114
  Serious: Yes (Other)
  Sender: SAMSUNG BIOEPIS
  Company Number: None

PATIENT
  Age: 43 Year
  Sex: Male

DRUGS (2)
  1. ADALIMUMAB [Suspect]
     Active Substance: ADALIMUMAB
     Indication: Psoriasis
     Dosage: 40MG S/C EVERY 2/52 INITIALLY BUT INCREASED TO WEEKLY IN JANUARY 2020 TO HELP JOINT ACHES
     Route: 058
     Dates: start: 20170613, end: 202001
  2. ADALIMUMAB [Suspect]
     Active Substance: ADALIMUMAB
     Dosage: 40MG S/C EVERY 2/52 INITIALLY BUT INCREASED TO WEEKLY IN JANUARY 2020 TO HELP JOINT ACHES
     Route: 058
     Dates: start: 202001, end: 20240130

REACTIONS (1)
  - Neurological symptom [Recovered/Resolved]

NARRATIVE: CASE EVENT DATE: 20230130
